FAERS Safety Report 13759347 (Version 3)
Quarter: 2018Q1

REPORT INFORMATION
  Report Type: Report from Study
  Country: DE (occurrence: DE)
  Receive Date: 20170717
  Receipt Date: 20180329
  Transmission Date: 20180508
  Serious: Yes (Hospitalization)
  Sender: FDA-Public Use
  Company Number: DE-ELI_LILLY_AND_COMPANY-DE201707001198

PATIENT
  Age: 58 Year
  Sex: Female
  Weight: 41 kg

DRUGS (7)
  1. PHYTOMENADIONE W/UREA [Concomitant]
     Active Substance: PHYTONADIONE\UREA
     Indication: PROPHYLAXIS
     Dosage: UNK
  2. CETUXIMAB. [Suspect]
     Active Substance: CETUXIMAB
     Indication: HEAD AND NECK CANCER
     Dosage: 400 MG/M2, UNKNOWN
     Route: 042
     Dates: start: 20170621, end: 20170621
  3. 5-FLUOROURACIL                     /00098801/ [Suspect]
     Active Substance: FLUOROURACIL
     Dosage: 200 MG/M2, UNK
     Dates: start: 20170720
  4. CARBOPLATIN. [Suspect]
     Active Substance: CARBOPLATIN
     Indication: HEAD AND NECK CANCER
     Dosage: 5 AUC,
     Route: 065
     Dates: start: 20170621
  5. CETUXIMAB. [Suspect]
     Active Substance: CETUXIMAB
     Dosage: 250 MG/M2, WEEKLY (1/W)
     Route: 042
     Dates: start: 20170704
  6. 5-FLUOROURACIL                     /00098801/ [Suspect]
     Active Substance: FLUOROURACIL
     Indication: HEAD AND NECK CANCER
     Dosage: 9000 MG/M2, 3/W
     Route: 065
     Dates: start: 20170621, end: 20170626
  7. PARACETAMOL [Concomitant]
     Active Substance: ACETAMINOPHEN
     Indication: PREMEDICATION
     Dosage: UNK

REACTIONS (5)
  - Enterocolitis infectious [Recovered/Resolved]
  - Platelet count decreased [Not Recovered/Not Resolved]
  - Mucosal inflammation [Unknown]
  - Neutrophil count decreased [Unknown]
  - Anaemia [Recovered/Resolved]

NARRATIVE: CASE EVENT DATE: 201706
